FAERS Safety Report 13755364 (Version 4)
Quarter: 2020Q2

REPORT INFORMATION
  Report Type: Spontaneous
  Country: US (occurrence: US)
  Receive Date: 20170714
  Receipt Date: 20200619
  Transmission Date: 20200713
  Serious: No
  Sender: FDA-Public Use
  Company Number: US-PFIZER INC-2017303850

PATIENT
  Age: 30 Year
  Sex: Female
  Weight: 141 kg

DRUGS (4)
  1. LYRICA [Suspect]
     Active Substance: PREGABALIN
     Dosage: UNK (75MG IN THE MORNING, 75MG OR 150MG DURING THE DAY AND 150MG AT NIGHT)
  2. LYRICA [Suspect]
     Active Substance: PREGABALIN
     Dosage: 150 MG, 3X/DAY (150 MG 1 CAPSULE BY MOUTH THREE TIMES A DAY)
     Route: 048
  3. LYRICA [Suspect]
     Active Substance: PREGABALIN
     Dosage: 75 MG
  4. LYRICA [Suspect]
     Active Substance: PREGABALIN
     Indication: FIBROMYALGIA
     Dosage: 50 MG

REACTIONS (4)
  - Insomnia [Unknown]
  - Dysstasia [Unknown]
  - Intentional product use issue [Unknown]
  - Movement disorder [Unknown]
